FAERS Safety Report 15076467 (Version 5)
Quarter: 2018Q3

REPORT INFORMATION
  Report Type: Report from Study
  Country: US (occurrence: US)
  Receive Date: 20180627
  Receipt Date: 20180828
  Transmission Date: 20181010
  Serious: Yes (Other)
  Sender: FDA-Public Use
  Company Number: US-AMGEN-USASL2018085718

PATIENT
  Age: 40 Year
  Sex: Female

DRUGS (1)
  1. ENBREL [Suspect]
     Active Substance: ETANERCEPT
     Indication: RHEUMATOID ARTHRITIS
     Dosage: 50 MG, QWK
     Route: 058
     Dates: start: 201805

REACTIONS (13)
  - Ovarian cyst ruptured [Unknown]
  - Sinusitis [Unknown]
  - Injection site reaction [Unknown]
  - Headache [Recovered/Resolved]
  - Ear infection [Unknown]
  - Nausea [Recovered/Resolved]
  - Fatigue [Unknown]
  - Alopecia [Unknown]
  - Depression [Unknown]
  - Rheumatoid arthritis [Not Recovered/Not Resolved]
  - Dysgeusia [Recovered/Resolved]
  - Herpes zoster [Unknown]
  - Dyspnoea [Recovered/Resolved]

NARRATIVE: CASE EVENT DATE: 2018
